FAERS Safety Report 24202173 (Version 3)
Quarter: 2024Q4

REPORT INFORMATION
  Report Type: Report from Study
  Country: US (occurrence: US)
  Receive Date: 20240812
  Receipt Date: 20241211
  Transmission Date: 20250114
  Serious: Yes (Other)
  Sender: SUNOVION
  Company Number: US-SUMITOMO PHARMA SWITZERLAND GMBH-2024SPA000614

PATIENT

DRUGS (6)
  1. ORGOVYX [Suspect]
     Active Substance: RELUGOLIX
     Indication: Prostate cancer
     Dosage: 360 MG, SINGLE
     Route: 048
     Dates: start: 20240112, end: 20240112
  2. ORGOVYX [Suspect]
     Active Substance: RELUGOLIX
     Dosage: 120 MG, QD
     Route: 048
     Dates: start: 20240113
  3. HYDROCHLOROTHIAZIDE [Suspect]
     Active Substance: HYDROCHLOROTHIAZIDE
     Dosage: UNK
     Route: 065
  4. LISINOPRIL [Suspect]
     Active Substance: LISINOPRIL
     Dosage: UNK
     Route: 065
  5. INSULIN NOS [Suspect]
     Active Substance: INSULIN NOS
     Dosage: UNK
     Route: 065
  6. NUBEQA [Suspect]
     Active Substance: DAROLUTAMIDE
     Dosage: 600 MG, BID
     Route: 065

REACTIONS (11)
  - Renal failure [Unknown]
  - Hypotension [Unknown]
  - Dehydration [Unknown]
  - Peripheral swelling [Recovered/Resolved]
  - Pollakiuria [Unknown]
  - Dry mouth [Unknown]
  - Dysgeusia [Unknown]
  - Dyspepsia [Unknown]
  - Vitamin D increased [Unknown]
  - Insomnia [Unknown]
  - Blood glucose increased [Unknown]
